FAERS Safety Report 6726723-7 (Version None)
Quarter: 2010Q2

REPORT INFORMATION
  Report Type: 
  Country: None (occurrence: None)
  Receive Date: 20100514
  Receipt Date: 20100510
  Transmission Date: 20101027
  Serious: Yes (Death, Other)
  Sender: FDA-Public Use
  Company Number: CA-ROCHE-702223

PATIENT
  Sex: Male
  Weight: 90.7 kg

DRUGS (4)
  1. PEGASYS [Suspect]
     Indication: HEPATITIS C
     Route: 058
     Dates: start: 20100205, end: 20100507
  2. RIBAVIRIN [Suspect]
     Indication: HEPATITIS C
     Route: 048
     Dates: start: 20100205, end: 20100507
  3. NADOLOL [Concomitant]
     Indication: HYPERTENSION
     Dosage: DRUG REPORTED: NADALOL
     Route: 048
     Dates: end: 20100507
  4. OXYCONTIN [Concomitant]
     Route: 048
     Dates: end: 20100507

REACTIONS (5)
  - ABDOMINAL DISTENSION [None]
  - CONFUSIONAL STATE [None]
  - DEATH [None]
  - DYSPNOEA [None]
  - MALAISE [None]
